FAERS Safety Report 10565003 (Version 1)
Quarter: 2014Q4

REPORT INFORMATION
  Report Type: Spontaneous
  Country: US (occurrence: None)
  Receive Date: 20141104
  Receipt Date: 20141104
  Transmission Date: 20150529
  Serious: Yes (Death, Life-Threatening, Hospitalization)
  Sender: FDA-Public Use
  Company Number: None

PATIENT
  Age: 65 Year
  Sex: Female
  Weight: 82.6 kg

DRUGS (15)
  1. CLONIDINE. [Concomitant]
     Active Substance: CLONIDINE
  2. OMEPRAZOLE. [Concomitant]
     Active Substance: OMEPRAZOLE
  3. COMBIVENT [Concomitant]
     Active Substance: ALBUTEROL SULFATE\IPRATROPIUM BROMIDE
  4. LATANOPROST OPHTHALMIC SOLUTION 0.005% [Concomitant]
     Active Substance: LATANOPROST
  5. FUROSEMIDE. [Concomitant]
     Active Substance: FUROSEMIDE
  6. ROSUVASTATIN [Concomitant]
     Active Substance: ROSUVASTATIN
  7. OLMESARTAN [Concomitant]
     Active Substance: OLMESARTAN
  8. POTASSIUM CHLORIDE. [Concomitant]
     Active Substance: POTASSIUM CHLORIDE
  9. NOVOLIN [Concomitant]
     Active Substance: INSULIN HUMAN
  10. VITAMIN D [Concomitant]
     Active Substance: CHOLECALCIFEROL
  11. LEVOTHYROXINE [Concomitant]
     Active Substance: LEVOTHYROXINE
  12. DIGOXIN. [Concomitant]
     Active Substance: DIGOXIN
  13. WARFARIN 5 MG [Suspect]
     Active Substance: WARFARIN
     Indication: ATRIAL FIBRILLATION
     Dosage: 1 TABLET, QHS/BEDTIME, ORAL
     Route: 048
  14. NEBIVOLOL [Concomitant]
     Active Substance: NEBIVOLOL
  15. ASPIRIN. [Concomitant]
     Active Substance: ASPIRIN

REACTIONS (3)
  - International normalised ratio increased [None]
  - Mental status changes [None]
  - Haemorrhage intracranial [None]

NARRATIVE: CASE EVENT DATE: 20140805
